FAERS Safety Report 11967713 (Version 1)
Quarter: 2016Q1

REPORT INFORMATION
  Report Type: Report from Study
  Country: US (occurrence: US)
  Receive Date: 20160127
  Receipt Date: 20160127
  Transmission Date: 20160526
  Serious: No
  Sender: FDA-Public Use
  Company Number: US-ABBVIE-15K-163-1386464-00

PATIENT
  Age: 44 Year
  Sex: Female

DRUGS (1)
  1. HUMIRA [Suspect]
     Active Substance: ADALIMUMAB
     Indication: PSORIATIC ARTHROPATHY
     Route: 065
     Dates: start: 20140709, end: 20150425

REACTIONS (6)
  - Dyspnoea [Unknown]
  - Urine odour abnormal [Unknown]
  - Rhinorrhoea [Unknown]
  - Cough [Unknown]
  - Pollakiuria [Unknown]
  - Wheezing [Unknown]

NARRATIVE: CASE EVENT DATE: 20150406
